FAERS Safety Report 5156741-4 (Version None)
Quarter: 2006Q4

REPORT INFORMATION
  Report Type: 
  Country: None (occurrence: None)
  Receive Date: 20061122
  Receipt Date: 20061116
  Transmission Date: 20070319
  Serious: Yes (Death, Hospitalization)
  Sender: FDA-Public Use
  Company Number: US-MERCK-0611USA05130

PATIENT
  Age: 77 Year
  Sex: Female

DRUGS (1)
  1. PRIMAXIN [Suspect]
     Indication: SEPSIS
     Route: 042
     Dates: start: 20061115, end: 20061115

REACTIONS (3)
  - DEATH [None]
  - PHARMACEUTICAL PRODUCT COMPLAINT [None]
  - SEPSIS [None]
